FAERS Safety Report 11689048 (Version 1)
Quarter: 2015Q4

REPORT INFORMATION
  Report Type: Spontaneous
  Country: US (occurrence: US)
  Receive Date: 20151102
  Receipt Date: 20151102
  Transmission Date: 20160304
  Serious: No
  Sender: FDA-Public Use
  Company Number: PHEH2015US021967

PATIENT
  Sex: Female
  Weight: 79 kg

DRUGS (2)
  1. FEMARA [Suspect]
     Active Substance: LETROZOLE
     Indication: BREAST CANCER
     Route: 065
  2. SYNTHROID [Concomitant]
     Active Substance: LEVOTHYROXINE SODIUM
     Indication: PRODUCT USED FOR UNKNOWN INDICATION
     Dosage: 25 UG QD (MON, WED, FRI) AND 50 UG QD (TUES,THURS, SAT, SUN)
     Route: 065

REACTIONS (2)
  - Pain [Unknown]
  - Arthralgia [Unknown]
